FAERS Safety Report 9549550 (Version 1)
Quarter: 2013Q3

REPORT INFORMATION
  Report Type: Spontaneous
  Country: US (occurrence: US)
  Receive Date: 20130924
  Receipt Date: 20130924
  Transmission Date: 20140515
  Serious: No
  Sender: FDA-Public Use
  Company Number: US-PFIZER INC-2013271828

PATIENT
  Age: 21 Year
  Sex: Female
  Weight: 74.8 kg

DRUGS (1)
  1. DEPO-SUBQ PROVERA 104 [Suspect]
     Indication: MENSTRUATION IRREGULAR
     Dosage: 104 MG, EVERY 3 MONTHS

REACTIONS (1)
  - Metrorrhagia [Unknown]
